FAERS Safety Report 7062896-7 (Version None)
Quarter: 2010Q4

REPORT INFORMATION
  Report Type: 
  Country: None (occurrence: None)
  Receive Date: 20101026
  Receipt Date: 20100222
  Transmission Date: 20110411
  Serious: No
  Sender: FDA-Public Use
  Company Number: US-PFIZER INC-2010023473

PATIENT
  Sex: Female

DRUGS (2)
  1. LIPITOR [Suspect]
     Dosage: 10 MG, UNK
  2. SIMVASTATIN [Suspect]
     Dosage: UNK

REACTIONS (1)
  - HEADACHE [None]
